FAERS Safety Report 6853873-7 (Version None)
Quarter: 2010Q3

REPORT INFORMATION
  Report Type: 
  Country: None (occurrence: None)
  Receive Date: 20100717
  Receipt Date: 20080119
  Transmission Date: 20110219
  Serious: Yes (Other)
  Sender: FDA-Public Use
  Company Number: US-PFIZER INC-2007105884

PATIENT
  Sex: Male

DRUGS (1)
  1. CHANTIX [Suspect]
     Indication: SMOKING CESSATION THERAPY

REACTIONS (7)
  - BURNOUT SYNDROME [None]
  - DEPRESSION [None]
  - IMPRISONMENT [None]
  - IRRITABILITY [None]
  - LOSS OF EMPLOYMENT [None]
  - SOCIAL PHOBIA [None]
  - SUICIDAL IDEATION [None]
